FAERS Safety Report 25236403 (Version 1)
Quarter: 2025Q2

REPORT INFORMATION
  Report Type: Spontaneous
  Country: ES (occurrence: ES)
  Receive Date: 20250424
  Receipt Date: 20250424
  Transmission Date: 20250717
  Serious: Yes (Life-Threatening, Hospitalization, Other)
  Sender: BRISTOL-MYERS SQUIBB COMPANY
  Company Number: None

PATIENT
  Age: 74 Year
  Sex: Female

DRUGS (1)
  1. MAVACAMTEN [Suspect]
     Active Substance: MAVACAMTEN
     Indication: Hypertrophic cardiomyopathy
     Dosage: 5MG/24H
     Route: 048
     Dates: start: 20241123, end: 20250301

REACTIONS (2)
  - Cardiac failure [Recovering/Resolving]
  - Arrhythmic storm [Recovering/Resolving]

NARRATIVE: CASE EVENT DATE: 20250301
